FAERS Safety Report 18028002 (Version 1)
Quarter: 2020Q3

REPORT INFORMATION
  Report Type: Spontaneous
  Country: US (occurrence: US)
  Receive Date: 20200715
  Receipt Date: 20200715
  Transmission Date: 20201103
  Serious: Yes (Hospitalization)
  Sender: FDA-Public Use
  Company Number: US-ASTRAZENECA-2020SE86181

PATIENT
  Age: 994 Month
  Sex: Male
  Weight: 61.2 kg

DRUGS (3)
  1. LYNPARZA [Suspect]
     Active Substance: OLAPARIB
     Indication: PANCREATIC CARCINOMA
     Dosage: 300MG IN MORNING AND 150MG AT NIGHT
     Route: 048
     Dates: start: 20200629
  2. LYNPARZA [Suspect]
     Active Substance: OLAPARIB
     Indication: PANCREATIC CARCINOMA
     Dosage: 300MG IN THE MORNING AND 150MG AT NIGHT
     Route: 048
     Dates: start: 20200601, end: 20200615
  3. LYNPARZA [Suspect]
     Active Substance: OLAPARIB
     Indication: PANCREATIC CARCINOMA
     Route: 048
     Dates: start: 20200515, end: 20200601

REACTIONS (5)
  - Product use issue [Unknown]
  - Constipation [Unknown]
  - Hernia [Unknown]
  - Abdominal pain [Unknown]
  - Procedural pain [Unknown]

NARRATIVE: CASE EVENT DATE: 202006
